FAERS Safety Report 7715831-X (Version None)
Quarter: 2011Q3

REPORT INFORMATION
  Report Type: 
  Country: None (occurrence: None)
  Receive Date: 20110829
  Receipt Date: 20110829
  Transmission Date: 20111222
  Serious: Yes (Life-Threatening)
  Sender: FDA-Public Use
  Company Number: None

PATIENT
  Age: 66 Year
  Sex: Female
  Weight: 49.895 kg

DRUGS (1)
  1. REVLIMID [Suspect]
     Indication: MYELODYSPLASTIC SYNDROME
     Dosage: 1 PER DAY
     Dates: start: 20110816, end: 20110823

REACTIONS (4)
  - RASH GENERALISED [None]
  - COUGH [None]
  - SKIN SWELLING [None]
  - DYSPHONIA [None]
